FAERS Safety Report 8824891 (Version 1)
Quarter: 2012Q4

REPORT INFORMATION
  Report Type: 
  Country: US (occurrence: US)
  Receive Date: 20121004
  Receipt Date: 20121004
  Transmission Date: 20130627
  Serious: No
  Sender: FDA-Public Use
  Company Number: US-009507513-1210USA001490

PATIENT
  Age: 74 Year
  Sex: Male

DRUGS (3)
  1. JANUMET [Suspect]
     Indication: TYPE 2 DIABETES MELLITUS
     Dosage: 500mg/50mg, bid
     Route: 048
     Dates: start: 201110
  2. LISINOPRIL [Concomitant]
  3. FINASTERIDE [Concomitant]

REACTIONS (1)
  - Dizziness [Recovering/Resolving]
